FAERS Safety Report 5179670-9 (Version None)
Quarter: 2006Q4

REPORT INFORMATION
  Report Type: 
  Country: None (occurrence: None)
  Receive Date: 20061211
  Receipt Date: 20061204
  Transmission Date: 20070319
  Serious: Yes (Death, Other)
  Sender: FDA-Public Use
  Company Number: 163-20785-06100922

PATIENT
  Age: 81 Year
  Sex: Female

DRUGS (7)
  1. THALOMID [Suspect]
     Indication: THYROID CANCER METASTATIC
     Dosage: 50 MG, 1 IN 1 D, ORAL
     Route: 048
     Dates: start: 20060729, end: 20060811
  2. ASPIRIN [Concomitant]
  3. ACTOS [Concomitant]
  4. LIPITOR [Concomitant]
  5. GLIPIZIDE [Concomitant]
  6. HYDROCODONE WITH APAP (HYDROCODONE) [Concomitant]
  7. QUININE SULFATE [Concomitant]

REACTIONS (4)
  - DIABETES MELLITUS NON-INSULIN-DEPENDENT [None]
  - DISEASE PROGRESSION [None]
  - HYPERTENSION [None]
  - THYROID CANCER METASTATIC [None]
